FAERS Safety Report 6170334-1 (Version None)
Quarter: 2009Q2

REPORT INFORMATION
  Report Type: 
  Country: None (occurrence: None)
  Receive Date: 20090427
  Receipt Date: 20090427
  Transmission Date: 20091009
  Serious: Yes (Other)
  Sender: FDA-Public Use
  Company Number: None

PATIENT
  Sex: Male
  Weight: 32.2 kg

DRUGS (4)
  1. CELEXA [Suspect]
     Indication: ATTENTION DEFICIT/HYPERACTIVITY DISORDER
     Dosage: 20MG PO DAILY
     Route: 048
     Dates: start: 20090410
  2. CELEXA [Suspect]
     Indication: DEPRESSION
     Dosage: 20MG PO DAILY
     Route: 048
     Dates: start: 20090410
  3. CELEXA [Suspect]
     Indication: ATTENTION DEFICIT/HYPERACTIVITY DISORDER
     Dosage: 20MG PO DAILY
     Route: 048
     Dates: start: 20090411
  4. CELEXA [Suspect]
     Indication: DEPRESSION
     Dosage: 20MG PO DAILY
     Route: 048
     Dates: start: 20090411

REACTIONS (1)
  - FORMICATION [None]
